FAERS Safety Report 18633312 (Version 1)
Quarter: 2020Q4

REPORT INFORMATION
  Report Type: Spontaneous
  Country: MY (occurrence: MY)
  Receive Date: 20201218
  Receipt Date: 20201218
  Transmission Date: 20210114
  Serious: Yes (Other)
  Sender: FDA-Public Use
  Company Number: MY-PFIZER INC-2020495509

PATIENT
  Age: 36 Year
  Sex: Female

DRUGS (1)
  1. SALAZOPYRIN EN [Suspect]
     Active Substance: SULFASALAZINE
     Indication: RHEUMATOID ARTHRITIS
     Dosage: 500 MG
     Route: 048

REACTIONS (4)
  - Rash erythematous [Recovering/Resolving]
  - Transaminases increased [Recovering/Resolving]
  - Periorbital oedema [Recovering/Resolving]
  - Leukopenia [Recovering/Resolving]
